FAERS Safety Report 20656147 (Version 2)
Quarter: 2022Q2

REPORT INFORMATION
  Report Type: Spontaneous
  Country: US (occurrence: US)
  Receive Date: 20220330
  Receipt Date: 20220426
  Transmission Date: 20220721
  Serious: Yes (Other)
  Sender: FDA-Public Use
  Company Number: US-ENDO PHARMACEUTICALS INC-2022-002246

PATIENT
  Age: 58 Year
  Sex: Male

DRUGS (4)
  1. AVEED [Suspect]
     Active Substance: TESTOSTERONE UNDECANOATE
     Indication: Blood testosterone decreased
     Dosage: UNK UNKNOWN, UNKNOWN
     Route: 065
  2. AVEED [Suspect]
     Active Substance: TESTOSTERONE UNDECANOATE
     Dosage: 750 MG, UNKNOWN
     Route: 065
  3. AVEED [Suspect]
     Active Substance: TESTOSTERONE UNDECANOATE
     Dosage: 750 MG, UNKNOWN (SECOND INJECTION)
     Route: 065
     Dates: start: 20220207, end: 20220207
  4. AVEED [Suspect]
     Active Substance: TESTOSTERONE UNDECANOATE
     Dosage: 750 MG, UNKNOWN (FIRST INJECTION)
     Route: 065
     Dates: start: 20220110, end: 20220110

REACTIONS (2)
  - Blindness transient [Recovered/Resolved]
  - Intraocular pressure increased [Unknown]

NARRATIVE: CASE EVENT DATE: 20211231
